FAERS Safety Report 14203706 (Version 1)
Quarter: 2017Q4

REPORT INFORMATION
  Report Type: Spontaneous
  Country: US (occurrence: US)
  Receive Date: 20171120
  Receipt Date: 20171120
  Transmission Date: 20180321
  Serious: No
  Sender: FDA-Public Use
  Company Number: US-PFIZER INC-2017497138

PATIENT
  Age: 67 Year
  Sex: Female

DRUGS (1)
  1. KERYDIN [Suspect]
     Active Substance: TAVABOROLE
     Indication: ONYCHOMYCOSIS
     Dosage: ONE DROP OF LIQUID ON HER TOENAIL DAILY FOR 48 WEEKS
     Route: 061
     Dates: start: 201708

REACTIONS (1)
  - Rash [Unknown]

NARRATIVE: CASE EVENT DATE: 201708
